FAERS Safety Report 14505609 (Version 1)
Quarter: 2018Q1

REPORT INFORMATION
  Report Type: Spontaneous
  Country: US (occurrence: US)
  Receive Date: 20180208
  Receipt Date: 20180208
  Transmission Date: 20180509
  Serious: No
  Sender: FDA-Public Use
  Company Number: US-PFIZER INC-2018054590

PATIENT
  Age: 27 Year
  Sex: Female

DRUGS (1)
  1. CHANTIX [Suspect]
     Active Substance: VARENICLINE TARTRATE
     Indication: SMOKING CESSATION THERAPY
     Dosage: TAKING AS DIRECTED FOR THE STARTER PACK AND THEN CONTINUING PACK
     Dates: start: 201710, end: 201711

REACTIONS (6)
  - Agitation [Not Recovered/Not Resolved]
  - Intentional product misuse [Unknown]
  - Abnormal dreams [Recovered/Resolved]
  - Mood altered [Not Recovered/Not Resolved]
  - Crying [Not Recovered/Not Resolved]
  - Expired product administered [Unknown]

NARRATIVE: CASE EVENT DATE: 201710
